FAERS Safety Report 12777958 (Version 1)
Quarter: 2016Q3

REPORT INFORMATION
  Report Type: Spontaneous
  Country: US (occurrence: US)
  Receive Date: 20160924
  Receipt Date: 20160924
  Transmission Date: 20161109
  Serious: No
  Sender: FDA-Public Use
  Company Number: US-JAZZ-2016-US-010895

PATIENT
  Sex: Female

DRUGS (19)
  1. CYMBALTA [Concomitant]
     Active Substance: DULOXETINE HYDROCHLORIDE
  2. XYREM [Suspect]
     Active Substance: SODIUM OXYBATE
     Indication: CATAPLEXY
     Dosage: 3 G, BID
     Route: 048
     Dates: start: 201309, end: 201310
  3. NIACINAMIDE ER [Concomitant]
  4. OLANZAPINE ODT [Concomitant]
     Active Substance: OLANZAPINE
  5. GABAPENTIN. [Concomitant]
     Active Substance: GABAPENTIN
  6. ZANAFLEX [Concomitant]
     Active Substance: TIZANIDINE HYDROCHLORIDE
  7. XYREM [Suspect]
     Active Substance: SODIUM OXYBATE
     Indication: NARCOLEPSY
     Dosage: 2.25 G, BID
     Route: 048
     Dates: start: 201308, end: 201309
  8. VITAMIN C TR [Concomitant]
  9. TRAMADOL ER [Concomitant]
     Active Substance: TRAMADOL HYDROCHLORIDE
  10. ZOLPIDEM TARTRATE. [Concomitant]
     Active Substance: ZOLPIDEM TARTRATE
  11. ZOLPIDEM TARTRATE ER [Concomitant]
     Active Substance: ZOLPIDEM TARTRATE
  12. MULTIVITAMINS [Concomitant]
     Active Substance: VITAMINS
  13. MAGNESIUM [Concomitant]
     Active Substance: MAGNESIUM
  14. XANAX [Concomitant]
     Active Substance: ALPRAZOLAM
  15. NUVIGIL [Concomitant]
     Active Substance: ARMODAFINIL
  16. XYREM [Suspect]
     Active Substance: SODIUM OXYBATE
     Dosage: 4.5 G, BID
     Route: 048
     Dates: start: 201310
  17. TIZANIDINE. [Suspect]
     Active Substance: TIZANIDINE
     Indication: PRODUCT USED FOR UNKNOWN INDICATION
     Dosage: UNK
  18. BEE POLLEN [Concomitant]
     Active Substance: BEE POLLEN
  19. ALPRAZOLAM. [Concomitant]
     Active Substance: ALPRAZOLAM

REACTIONS (2)
  - Unevaluable event [Unknown]
  - Myalgia [Not Recovered/Not Resolved]
